FAERS Safety Report 15826910 (Version 1)
Quarter: 2019Q1

REPORT INFORMATION
  Report Type: Spontaneous
  Country: IN (occurrence: IN)
  Receive Date: 20190115
  Receipt Date: 20190115
  Transmission Date: 20190417
  Serious: Yes (Life-Threatening, Hospitalization)
  Sender: FDA-Public Use
  Company Number: IN-PURACAP PHARMACEUTICAL LLC-2019EPC00003

PATIENT
  Age: 22 Year
  Sex: Female

DRUGS (1)
  1. AMLODIPINE [Suspect]
     Active Substance: AMLODIPINE BESYLATE
     Dosage: 900 MG (90 TABLETS OF 10 MG EACH)
     Route: 048

REACTIONS (6)
  - Acute kidney injury [Recovered/Resolved]
  - Intentional overdose [Recovered/Resolved]
  - Shock [Recovered/Resolved]
  - Respiratory failure [Recovered/Resolved]
  - Suicide attempt [Recovered/Resolved]
  - Toxicity to various agents [Recovered/Resolved]
